FAERS Safety Report 8428630-0 (Version None)
Quarter: 2012Q2

REPORT INFORMATION
  Report Type: 
  Country: None (occurrence: None)
  Receive Date: 20120606
  Receipt Date: 20120531
  Transmission Date: 20120825
  Serious: Yes (Life-Threatening, Disabling, Other)
  Sender: FDA-Public Use
  Company Number: IMP_05805_2012

PATIENT
  Sex: Female
  Weight: 95.2554 kg

DRUGS (13)
  1. PREDNISONE [Concomitant]
  2. HYDROCHLOROTHIAZIDE [Concomitant]
  3. ASPIRIN [Concomitant]
  4. VITAMIN D [Concomitant]
  5. PLASMAPHERESIS BLOOD-PACK SYSTEM INFUSION [Concomitant]
  6. PYRIDOSTIGMINE BROMIDE [Suspect]
     Indication: PRODUCT USED FOR UNKNOWN INDICATION
     Dosage: (60 MG QID ORAL), (DF [FREQUENCY UNKNOWN])
     Route: 048
     Dates: start: 20111107, end: 20120107
  7. PYRIDOSTIGMINE BROMIDE [Suspect]
     Indication: PRODUCT USED FOR UNKNOWN INDICATION
     Dosage: (60 MG QID ORAL), (DF [FREQUENCY UNKNOWN])
     Route: 048
     Dates: start: 20120101
  8. MAGNESIUM OXIDE [Concomitant]
  9. OLMESARTAN MEDOXOMIL [Concomitant]
  10. FISH OIL [Concomitant]
  11. CITRICAL D [Concomitant]
  12. IMURAN [Concomitant]
  13. ACCOMIN MULTIVITAMIN [Concomitant]

REACTIONS (6)
  - PRODUCT QUALITY ISSUE [None]
  - CONFUSIONAL STATE [None]
  - EYE DISORDER [None]
  - DRUG INEFFECTIVE [None]
  - MENTAL IMPAIRMENT [None]
  - MUSCULAR WEAKNESS [None]
